FAERS Safety Report 4538687-5 (Version None)
Quarter: 2004Q4

REPORT INFORMATION
  Report Type: 
  Country: None (occurrence: None)
  Receive Date: 20041222
  Receipt Date: 20041206
  Transmission Date: 20050328
  Serious: Yes (Hospitalization)
  Sender: FDA-Public Use
  Company Number: F01200401602

PATIENT
  Age: 66 Year
  Sex: Female

DRUGS (6)
  1. (OXALIPLATIN) - SOLUTION - 210 MG [Suspect]
     Indication: COLORECTAL CANCER
     Dosage: 210 MG Q3WK, 1800 MG TWICE DAILY FROM D1-D14, INTRAVENOUS NOS
     Route: 042
     Dates: start: 20040211, end: 20040211
  2. (CAPECITABINE) - TABLET - 1800 MG [Suspect]
     Dosage: Q3W, ORAL
     Route: 048
     Dates: start: 20040211, end: 20040228
  3. METOPROLOL [Concomitant]
  4. LORTAB (ACTEMINOPHEN/HYDROCODONE BITARTRATE) [Concomitant]
  5. PHENERGAN [Concomitant]
  6. ATIVAN [Concomitant]

REACTIONS (4)
  - BALANCE DISORDER [None]
  - FALL [None]
  - HIP FRACTURE [None]
  - NEUROPATHY [None]
